FAERS Safety Report 11660485 (Version 1)
Quarter: 2015Q4

REPORT INFORMATION
  Report Type: Spontaneous
  Country: None (occurrence: US)
  Receive Date: 20151026
  Receipt Date: 20151026
  Transmission Date: 20160304
  Serious: No
  Sender: FDA-Public Use
  Company Number: US-MEDAC PHARMA, INC.-1043372

PATIENT
  Age: 64 Year
  Sex: Female
  Weight: 58.18 kg

DRUGS (7)
  1. MULTI-VITAMIN [Concomitant]
     Active Substance: .ALPHA.-TOCOPHEROL ACETATE, DL-\ASCORBIC ACID\CYANOCOBALAMIN\FLUORIDE ION\FOLIC ACID\NIACIN\PYRIDOXINE\RIBOFLAVIN\THIAMINE\VITAMIN A\VITAMIN D
  2. FOLIC ACID. [Concomitant]
     Active Substance: FOLIC ACID
  3. SUCRALFATE. [Concomitant]
     Active Substance: SUCRALFATE
  4. RASUVO [Suspect]
     Active Substance: METHOTREXATE SODIUM
     Indication: PSORIATIC ARTHROPATHY
     Route: 058
     Dates: start: 20150928, end: 20151005
  5. OMEPRAZOLE. [Concomitant]
     Active Substance: OMEPRAZOLE
  6. VITAMIN D3DIETARY SUPPLEMEN DIETARY SUPPLEMENT [Concomitant]
     Active Substance: ALPHA-TOCOPHEROL\CHOLECALCIFEROL
     Dates: start: 2014
  7. OMEGA 3 [Concomitant]
     Active Substance: OMEGA-3 FATTY ACIDS

REACTIONS (3)
  - Dysuria [Recovered/Resolved]
  - Blood urine present [Recovered/Resolved]
  - Bladder pain [Recovered/Resolved]

NARRATIVE: CASE EVENT DATE: 20151012
